FAERS Safety Report 9072406 (Version 2)
Quarter: 2013Q1

REPORT INFORMATION
  Report Type: Spontaneous
  Country: US (occurrence: US)
  Receive Date: 20130207
  Receipt Date: 20130325
  Transmission Date: 20140127
  Serious: Yes (Congenital Anomaly, Other)
  Sender: FDA-Public Use
  Company Number: US-PFIZER INC-2013046584

PATIENT
  Sex: Male

DRUGS (3)
  1. ZOLOFT [Suspect]
     Indication: DEPRESSION
     Dosage: UNK
     Route: 064
     Dates: start: 1997, end: 1998
  2. PROZAC [Concomitant]
     Dosage: UNK
     Route: 064
  3. PRENATAL VITAMINS [Concomitant]
     Dosage: UNK
     Route: 064

REACTIONS (16)
  - Maternal exposure during pregnancy [Unknown]
  - Neonatal respiratory distress syndrome [Unknown]
  - Sepsis neonatal [Unknown]
  - Congenital tricuspid valve incompetence [Unknown]
  - Pulmonary valve stenosis congenital [Unknown]
  - Pulmonary artery dilatation [Unknown]
  - Congenital teratoma [Unknown]
  - Congenital mitral valve incompetence [Unknown]
  - Cardiac failure congestive [Unknown]
  - Haemangioma congenital [Recovered/Resolved]
  - Congenital coagulopathy [Unknown]
  - Atrial septal defect [Unknown]
  - Apnoea neonatal [Unknown]
  - Cardiomegaly [Unknown]
  - Bradycardia [Unknown]
  - Premature baby [Unknown]
